FAERS Safety Report 19070318 (Version 1)
Quarter: 2021Q1

REPORT INFORMATION
  Report Type: Report from Study
  Country: FR (occurrence: FR)
  Receive Date: 20210329
  Receipt Date: 20210329
  Transmission Date: 20210420
  Serious: Yes (Other)
  Sender: FDA-Public Use
  Company Number: FR-US-PROVELL PHARMACEUTICALS LLC-9214078

PATIENT
  Sex: Female

DRUGS (2)
  1. LEVOTHYROX [Suspect]
     Active Substance: LEVOTHYROXINE
     Dosage: IN NOV 2020 SUNDAY, MONDAY, WEDNESDAY, FRIDAY:75 UG?TUESDAY, THURSDAY AND SATURDAY: 50 UG OR 62.8 UG
  2. LEVOTHYROX [Suspect]
     Active Substance: LEVOTHYROXINE
     Indication: AUTOIMMUNE THYROIDITIS
     Dates: end: 202011

REACTIONS (9)
  - Maternal exposure during pregnancy [Recovered/Resolved]
  - Live birth [Recovered/Resolved]
  - Menorrhagia [Unknown]
  - Thyroidectomy [Unknown]
  - Fear [Unknown]
  - Dizziness [Unknown]
  - Thyroid mass [Unknown]
  - Fatigue [Unknown]
  - Blood thyroid stimulating hormone increased [Unknown]

NARRATIVE: CASE EVENT DATE: 20201001
